FAERS Safety Report 6044159-1 (Version None)
Quarter: 2009Q1

REPORT INFORMATION
  Report Type: 
  Country: None (occurrence: None)
  Receive Date: 20090115
  Receipt Date: 20090115
  Transmission Date: 20090719
  Serious: No
  Sender: FDA-Public Use
  Company Number: None

PATIENT
  Sex: Female

DRUGS (3)
  1. AREDIA [Suspect]
     Indication: LUNG CANCER METASTATIC
     Dosage: 90 MG MONTHLY IV
     Route: 042
     Dates: start: 20000401, end: 20011001
  2. ZOMETA [Suspect]
     Indication: LUNG CANCER METASTATIC
     Dosage: 4 MG MONTHLY IV
     Route: 042
     Dates: start: 20011101, end: 20031101
  3. ADRIAMYCIN AND TAXOL CHEMOTHERAPY [Concomitant]

REACTIONS (4)
  - BONE DISORDER [None]
  - JAW DISORDER [None]
  - ORAL CAVITY FISTULA [None]
  - SECRETION DISCHARGE [None]
